FAERS Safety Report 4972136-8 (Version None)
Quarter: 2006Q2

REPORT INFORMATION
  Report Type: 
  Country: None (occurrence: None)
  Receive Date: 20060413
  Receipt Date: 20060123
  Transmission Date: 20061013
  Serious: Yes (Other)
  Sender: FDA-Public Use
  Company Number: DE-NOVOPROD-250252

PATIENT
  Age: 65 Year
  Sex: Male

DRUGS (7)
  1. NOVOSEVEN [Suspect]
     Indication: COAGULOPATHY
     Dosage: UNK, SINGLE
     Route: 042
     Dates: start: 20060115, end: 20060115
  2. FEIBA [Concomitant]
  3. CORTISOL [Concomitant]
  4. RED BLOOD CELLS [Concomitant]
     Dosage: 4 UNK, QD
     Route: 042
     Dates: start: 20060115, end: 20060115
  5. FRESH FROZEN PLASMA [Concomitant]
     Route: 042
     Dates: start: 20060115, end: 20060115
  6. LASIX [Concomitant]
     Route: 042
  7. NOREPINEPHRINE BITARTRATE [Concomitant]

REACTIONS (2)
  - BLOOD PRESSURE INCREASED [None]
  - HYPERSENSITIVITY [None]
